FAERS Safety Report 7713505-2 (Version None)
Quarter: 2011Q3

REPORT INFORMATION
  Report Type: 
  Country: None (occurrence: None)
  Receive Date: 20110826
  Receipt Date: 20110812
  Transmission Date: 20111222
  Serious: Yes (Hospitalization)
  Sender: FDA-Public Use
  Company Number: ES-UCBSA-038955

PATIENT
  Sex: Male
  Weight: 85.5 kg

DRUGS (7)
  1. LACOSAMIDE [Suspect]
     Route: 048
     Dates: start: 20110810
  2. SIMAVASTATIN [Concomitant]
     Indication: HYPERCHOLESTEROLAEMIA
     Route: 048
     Dates: start: 20000101
  3. ZONISAMIDE [Concomitant]
     Indication: EPILEPSY
     Route: 048
     Dates: start: 20070701
  4. ATENOLOL AND CLORTALIDONE [Concomitant]
     Indication: HYPERTENSION
     Dosage: 1 UNIT ONCE DAILY
     Route: 048
     Dates: start: 20110803
  5. BARNIDIPINE [Concomitant]
     Indication: HYPERTENSION
     Dosage: 20 MG
     Dates: end: 20110803
  6. LACOSAMIDE [Suspect]
     Indication: PARTIAL SEIZURES
     Dosage: UNKNOWN DOSE SINCE 13/JUL/2011 TO AUG/2011
     Route: 048
     Dates: start: 20110803, end: 20110809
  7. OXCARBAZEPINE [Concomitant]
     Indication: EPILEPSY
     Dosage: 450-150-450 MG
     Route: 048
     Dates: start: 20050901, end: 20110809

REACTIONS (2)
  - HYPONATRAEMIA [None]
  - HYPOCHLORAEMIA [None]
